FAERS Safety Report 6706258-8 (Version None)
Quarter: 2010Q2

REPORT INFORMATION
  Report Type: 
  Country: None (occurrence: None)
  Receive Date: 20100430
  Receipt Date: 20100430
  Transmission Date: 20101027
  Serious: Yes (Hospitalization)
  Sender: FDA-Public Use
  Company Number: None

PATIENT
  Sex: Female
  Weight: 142.14 kg

DRUGS (2)
  1. CARBOPLATIN [Suspect]
     Dosage: 865 MG
  2. TAXOL [Suspect]
     Dosage: 333 MG

REACTIONS (3)
  - CARDIOMEGALY [None]
  - CHEST PAIN [None]
  - LABORATORY TEST INTERFERENCE [None]
